FAERS Safety Report 16963365 (Version 2)
Quarter: 2019Q4

REPORT INFORMATION
  Report Type: Spontaneous
  Country: US (occurrence: US)
  Receive Date: 20191025
  Receipt Date: 20191206
  Transmission Date: 20200122
  Serious: No
  Sender: FDA-Public Use
  Company Number: US-GLAXOSMITHKLINE-US2019189813

PATIENT
  Age: 71 Year
  Sex: Male

DRUGS (2)
  1. FLOVENT [Suspect]
     Active Substance: FLUTICASONE PROPIONATE
     Indication: ASTHMA
     Dosage: 2 PUFF(S), BID
     Route: 065
     Dates: start: 201805
  2. FLOVENT [Suspect]
     Active Substance: FLUTICASONE PROPIONATE
     Dosage: 1 PUFF(S) EVERY 3 HOURS
     Route: 065

REACTIONS (7)
  - Overdose [Unknown]
  - Cough [Unknown]
  - Wrong technique in device usage process [Unknown]
  - Sinusitis [Recovered/Resolved]
  - Productive cough [Unknown]
  - Bronchitis [Recovered/Resolved]
  - Lymphadenopathy [Recovered/Resolved]

NARRATIVE: CASE EVENT DATE: 201811
